FAERS Safety Report 5373901-8 (Version None)
Quarter: 2007Q2

REPORT INFORMATION
  Report Type: 
  Country: None (occurrence: None)
  Receive Date: 20070628
  Receipt Date: 20070617
  Transmission Date: 20071010
  Serious: Yes (Other)
  Sender: FDA-Public Use
  Company Number: US-PFIZER INC-2007050851

PATIENT
  Sex: Female
  Weight: 72.727 kg

DRUGS (6)
  1. CHANTIX [Suspect]
     Indication: SMOKING CESSATION THERAPY
     Dates: start: 20070608, end: 20070615
  2. ASACOL [Concomitant]
  3. LEXAPRO [Concomitant]
  4. ASCORBIC ACID [Concomitant]
  5. ACETYLSALICYLIC ACID SRT [Concomitant]
  6. CLONAZEPAM [Concomitant]

REACTIONS (10)
  - AGITATION [None]
  - DEPRESSION [None]
  - DYSGEUSIA [None]
  - FATIGUE [None]
  - MALAISE [None]
  - MOVEMENT DISORDER [None]
  - NIGHTMARE [None]
  - PERSONALITY CHANGE [None]
  - SLEEP DISORDER [None]
  - THINKING ABNORMAL [None]
